FAERS Safety Report 11884355 (Version 1)
Quarter: 2016Q1

REPORT INFORMATION
  Report Type: Spontaneous
  Country: US (occurrence: US)
  Receive Date: 20160103
  Receipt Date: 20160103
  Transmission Date: 20160526
  Serious: Yes (Other)
  Sender: FDA-Public Use
  Company Number: US-JNJFOC-20151219546

PATIENT
  Age: 44 Year
  Sex: Female

DRUGS (2)
  1. TYLENOL COLD PLUS SORE THROAT EXTRA STRENGTH [Suspect]
     Active Substance: ACETAMINOPHEN
     Indication: OROPHARYNGEAL PAIN
     Route: 065
     Dates: start: 20151217
  2. PROGESTERONE. [Suspect]
     Active Substance: PROGESTERONE
     Indication: VAGINAL HAEMORRHAGE
     Route: 065
     Dates: start: 20151216

REACTIONS (3)
  - Enlarged uvula [Recovering/Resolving]
  - Pharyngeal oedema [Recovering/Resolving]
  - Tonsillar disorder [Recovering/Resolving]

NARRATIVE: CASE EVENT DATE: 20151217
